FAERS Safety Report 9166786 (Version 1)
Quarter: 2012Q4

REPORT INFORMATION
  Report Type: 
  Country: US (occurrence: US)
  Receive Date: 20121115
  Receipt Date: 20121115
  Transmission Date: 20130627
  Serious: Yes (Other)
  Sender: FDA-Public Use
  Company Number: US-RB-045306-12

PATIENT
  Age: 0 None
  Sex: Male

DRUGS (10)
  1. SUBOXONE FILM [Suspect]
     Indication: DRUG DEPENDENCE
     Dosage: Suboxone film, dosing details unspecified
     Route: 064
     Dates: start: 201112, end: 201206
  2. SUBOXONE TABLET [Suspect]
     Indication: DRUG DEPENDENCE
     Dosage: Dosing details unspecified
     Route: 064
     Dates: start: 201112, end: 201206
  3. DILAUDID [Suspect]
     Indication: BACK PAIN
     Dosage: In 7th month,  ^a lot^ 3 x daily
     Route: 064
     Dates: start: 201206, end: 20120719
  4. XANAX [Suspect]
     Indication: ANXIETY
     Dosage: Unknown daily dosage throughout pregnancy
     Route: 064
     Dates: start: 201111, end: 20120719
  5. XANAX [Suspect]
     Indication: DRUG DEPENDENCE
     Dosage: Unknown daily dosage throughout pregnancy
     Route: 064
     Dates: start: 201111, end: 20120719
  6. CRACK COCAINE [Suspect]
     Indication: DRUG DEPENDENCE
     Dosage: Dosing details unspecified
     Route: 064
     Dates: start: 201111, end: 201112
  7. OXYCONTIN [Suspect]
     Indication: DRUG DEPENDENCE
     Dosage: Dosage details unspecified
     Route: 064
     Dates: start: 201111, end: 201112
  8. OXYCONTIN [Suspect]
     Dosage: Dosing details unspecified
     Route: 064
     Dates: start: 201206, end: 20120719
  9. NICOTENE [Suspect]
     Indication: TOBACCO USER
     Dosage: 20 cigarettes daily
     Route: 064
     Dates: start: 201111, end: 20120719
  10. CANNABIS SATIVA SUBSP. INDICA TOP [Suspect]
     Indication: DRUG ABUSE
     Dosage: Dose details not provided
     Route: 064
     Dates: start: 201111, end: 2012

REACTIONS (2)
  - Premature baby [Recovered/Resolved]
  - Foetal exposure during pregnancy [Recovered/Resolved]
